FAERS Safety Report 16991897 (Version 1)
Quarter: 2019Q4

REPORT INFORMATION
  Report Type: Spontaneous
  Country: US (occurrence: US)
  Receive Date: 20190920
  Receipt Date: 20190920
  Transmission Date: 20200122
  Serious: Yes (Hospitalization)
  Sender: FDA-Public Use
  Company Number: None

PATIENT
  Age: 65 Year
  Sex: Female

DRUGS (16)
  1. OXYGEN SUPPLEMENTAL [Concomitant]
     Active Substance: OXYGEN
  2. VELETRI [Concomitant]
     Active Substance: EPOPROSTENOL
  3. TRAMADOL. [Concomitant]
     Active Substance: TRAMADOL
  4. OYCODONE [Concomitant]
  5. CYCLOBENZAPRINE. [Concomitant]
     Active Substance: CYCLOBENZAPRINE
  6. VOLTAREN TOP GEL [Concomitant]
  7. VITAMIN B COMPLEX [Concomitant]
     Active Substance: CYANOCOBALAMIN\DEXPANTHENOL\NIACINAMIDE\PYRIDOXINE HYDROCHLORIDE\RIBOFLAVIN 5^-PHOSPHATE SODIUM\THIAMINE HYDROCHLORIDE\VITAMIN B COMPLEX
  8. SILDENAFIL. [Concomitant]
     Active Substance: SILDENAFIL
  9. DIGOXIN. [Concomitant]
     Active Substance: DIGOXIN
  10. NORTRIPTYLINE [Concomitant]
     Active Substance: NORTRIPTYLINE
  11. WARFARIN [Concomitant]
     Active Substance: WARFARIN
  12. FLONASE [Concomitant]
     Active Substance: FLUTICASONE PROPIONATE
  13. AZATHIOPRINE. [Concomitant]
     Active Substance: AZATHIOPRINE
  14. OMEGA-3 FISH OIL [Concomitant]
     Active Substance: FISH OIL\OMEGA-3 FATTY ACIDS
  15. AMBRISENTAN 10MG TABLETS 30/BO: 10MG [Suspect]
     Active Substance: AMBRISENTAN
     Indication: PULMONARY ARTERIAL HYPERTENSION
     Route: 048
     Dates: start: 201112
  16. ETHACRYNIC ACID. [Concomitant]
     Active Substance: ETHACRYNIC ACID

REACTIONS (1)
  - Right ventricular failure [None]

NARRATIVE: CASE EVENT DATE: 20190909
